FAERS Safety Report 23666905 (Version 3)
Quarter: 2025Q2

REPORT INFORMATION
  Report Type: Spontaneous
  Country: CA (occurrence: CA)
  Receive Date: 20240325
  Receipt Date: 20250619
  Transmission Date: 20250716
  Serious: Yes (Death, Life-Threatening, Hospitalization, Disabling, Other)
  Sender: ABBVIE
  Company Number: CA-ABBVIE-5682098

PATIENT
  Age: 44 Year
  Sex: Female

DRUGS (4)
  1. HUMIRA [Suspect]
     Active Substance: ADALIMUMAB
     Indication: Rheumatoid arthritis
     Route: 058
  2. HUMIRA [Suspect]
     Active Substance: ADALIMUMAB
     Indication: Psoriatic arthropathy
     Route: 058
  3. HUMIRA [Suspect]
     Active Substance: ADALIMUMAB
     Route: 058
  4. HUMIRA [Suspect]
     Active Substance: ADALIMUMAB
     Route: 058

REACTIONS (30)
  - Dizziness [Fatal]
  - Treatment failure [Fatal]
  - Underdose [Fatal]
  - Inappropriate schedule of product administration [Fatal]
  - Adverse event [Fatal]
  - Intentional product misuse [Fatal]
  - Prescribed overdose [Fatal]
  - Respiratory tract infection [Fatal]
  - Product use issue [Fatal]
  - Visual impairment [Fatal]
  - Tachycardia [Fatal]
  - Muscle spasticity [Fatal]
  - Off label use [Fatal]
  - Respiratory disorder [Fatal]
  - Swollen joint count [Fatal]
  - Swollen joint count increased [Fatal]
  - Thrombocytopenia [Fatal]
  - Drug tolerance decreased [Fatal]
  - Gait inability [Fatal]
  - Joint dislocation [Fatal]
  - Joint stiffness [Fatal]
  - Lower limb fracture [Fatal]
  - Therapeutic product effect incomplete [Fatal]
  - Vomiting [Fatal]
  - Weight fluctuation [Fatal]
  - White blood cell count increased [Fatal]
  - X-ray abnormal [Fatal]
  - Arthritis [Fatal]
  - C-reactive protein [Fatal]
  - Deep vein thrombosis postoperative [Fatal]
